FAERS Safety Report 8478757-2 (Version None)
Quarter: 2012Q2

REPORT INFORMATION
  Report Type: 
  Country: None (occurrence: None)
  Receive Date: 20120629
  Receipt Date: 20120619
  Transmission Date: 20120825
  Serious: Yes (Hospitalization)
  Sender: FDA-Public Use
  Company Number: US-ABBOTT-12P-163-0947682-00

PATIENT
  Age: 72 Year
  Sex: Female

DRUGS (11)
  1. ACETAMINOPHEN [Concomitant]
     Indication: PRODUCT USED FOR UNKNOWN INDICATION
  2. HUMIRA [Suspect]
     Indication: PSORIASIS
     Dates: start: 20100101
  3. SPIRIVA [Concomitant]
     Indication: CHRONIC OBSTRUCTIVE PULMONARY DISEASE
  4. VARIOUS CREMES [Concomitant]
     Indication: PSORIASIS
  5. HUMIRA [Suspect]
     Dates: end: 20110701
  6. HUMIRA [Suspect]
     Dates: start: 20120608
  7. COMBIVENT [Concomitant]
     Indication: CHRONIC OBSTRUCTIVE PULMONARY DISEASE
  8. DICLOFENAC SODIUM [Concomitant]
     Indication: ARTHRITIS
  9. SERTALINE [Concomitant]
     Indication: DEPRESSION
     Dosage: 1 AND 1/2 TAB ONCE DAILY
  10. HYDROCHLOROTHIAZIDE [Concomitant]
     Indication: HYPERTENSION
  11. VITAMIN D [Concomitant]
     Indication: PRODUCT USED FOR UNKNOWN INDICATION
     Dosage: 50000 UNIT WEEKLY

REACTIONS (6)
  - PNEUMONIA [None]
  - PSORIASIS [None]
  - RESPIRATORY DISORDER [None]
  - CHRONIC OBSTRUCTIVE PULMONARY DISEASE [None]
  - DEHYDRATION [None]
  - SLEEP DISORDER [None]
